FAERS Safety Report 8351021 (Version 3)
Quarter: 2015Q1

REPORT INFORMATION
  Report Type: Report from Study
  Country: US (occurrence: US)
  Receive Date: 20120124
  Receipt Date: 20150204
  Transmission Date: 20150721
  Serious: Yes (Death)
  Sender: FDA-Public Use
  Company Number: US-ROCHE-1032890

PATIENT
  Age: 77 Year
  Sex: Male

DRUGS (17)
  1. ATENOLOL. [Concomitant]
     Active Substance: ATENOLOL
     Dosage: DAILY
     Route: 048
  2. AVASTIN [Suspect]
     Active Substance: BEVACIZUMAB
     Route: 042
  3. CRESTOR [Concomitant]
     Active Substance: ROSUVASTATIN CALCIUM
     Dosage: DAILY
     Route: 048
  4. COUMADIN [Concomitant]
     Active Substance: WARFARIN SODIUM
     Dosage: DAILY DOSE 2.5 MG ALTERINATING WITH 5 MG EVERY OTHER DAY.
     Route: 065
  5. TETRACYCLIN [Concomitant]
     Route: 048
  6. NEULASTA [Suspect]
     Active Substance: PEGFILGRASTIM
     Indication: PROPHYLAXIS
     Dosage: X 1 DOSE
     Route: 058
     Dates: start: 20100314
  7. METROGEL [Concomitant]
     Active Substance: METRONIDAZOLE
     Indication: PRODUCT USED FOR UNKNOWN INDICATION
     Route: 061
  8. WARFARIN [Concomitant]
     Active Substance: WARFARIN
     Route: 048
  9. OSCAL [Concomitant]
     Active Substance: CALCIUM CARBONATE
     Dosage: DAILY
     Route: 048
  10. CISPLATIN. [Concomitant]
     Active Substance: CISPLATIN
     Indication: BLADDER CANCER
     Dosage: X 1 DOSE
     Route: 042
     Dates: start: 20100312, end: 20100312
  11. CISPLATIN. [Concomitant]
     Active Substance: CISPLATIN
     Route: 042
     Dates: start: 20100314
  12. NEULASTA [Suspect]
     Active Substance: PEGFILGRASTIM
     Dosage: X 1 DOSE
     Route: 042
  13. DIGOXIN. [Concomitant]
     Active Substance: DIGOXIN
     Dosage: DAILY
     Route: 048
  14. NIASPAN [Concomitant]
     Active Substance: NIACIN
     Dosage: DAILY
     Route: 065
  15. AVASTIN [Suspect]
     Active Substance: BEVACIZUMAB
     Indication: BLADDER CANCER
     Dosage: FREQUENCY X1 DOSE
     Route: 042
     Dates: start: 20100312, end: 20100312
  16. DOCETAXEL. [Suspect]
     Active Substance: DOCETAXEL
     Indication: BLADDER CANCER
     Dosage: X 1 DOSE
     Route: 042
     Dates: start: 20100312, end: 20100312
  17. ASPIRIN. [Concomitant]
     Active Substance: ASPIRIN
     Dosage: DAILY
     Route: 048

REACTIONS (6)
  - Hypotension [Fatal]
  - Upper gastrointestinal haemorrhage [Fatal]
  - Acute kidney injury [Fatal]
  - Neutropenia [Fatal]
  - Cerebrovascular accident [Fatal]
  - Septic shock [Fatal]

NARRATIVE: CASE EVENT DATE: 20100318
